FAERS Safety Report 8757626 (Version 1)
Quarter: 2012Q4

REPORT INFORMATION
  Report Type: 
  Country: IT (occurrence: IT)
  Receive Date: 20120828
  Receipt Date: 20120828
  Transmission Date: 20130627
  Serious: Yes (Other)
  Sender: FDA-Public Use
  Company Number: PHHY2012IT073430

PATIENT
  Age: 79 Year
  Sex: Male

DRUGS (8)
  1. LEVOFLOXACIN [Suspect]
     Indication: BRONCHITIS
     Dosage: 500 mg, DAILY
     Route: 048
     Dates: start: 20120531, end: 20120605
  2. AZITHROMYCIN DIHYDRATE [Interacting]
     Indication: BRONCHITIS
     Dosage: 500 mg, DAILY
     Route: 048
     Dates: start: 20120528, end: 20120530
  3. COUMADIN [Interacting]
     Indication: ATRIAL FIBRILLATION
     Dosage: 13.75 mg, QW3
     Route: 048
     Dates: start: 20100906, end: 20120531
  4. LIMPIDEX [Concomitant]
     Dosage: 15 mg
  5. ENAPREN [Concomitant]
  6. AVODART [Concomitant]
  7. ATORVASTATIN [Concomitant]
  8. RIFACOL [Concomitant]

REACTIONS (2)
  - International normalised ratio increased [Recovered/Resolved]
  - Drug interaction [Recovered/Resolved]
